FAERS Safety Report 6093195-8 (Version None)
Quarter: 2009Q1

REPORT INFORMATION
  Report Type: 
  Country: None (occurrence: None)
  Receive Date: 20090226
  Receipt Date: 20090220
  Transmission Date: 20090719
  Serious: Yes (Hospitalization)
  Sender: FDA-Public Use
  Company Number: FR-WYE-G03164209

PATIENT
  Sex: Female

DRUGS (8)
  1. EFFEXOR [Suspect]
     Indication: DEPRESSION
     Route: 048
     Dates: start: 20080805, end: 20081016
  2. NEXIUM [Concomitant]
     Route: 048
     Dates: start: 20050101
  3. ALCOHOL [Concomitant]
     Dosage: UNKNOWN
     Route: 048
  4. VALIUM [Concomitant]
     Route: 048
  5. GARDENAL [Concomitant]
     Route: 048
  6. SELOKEN [Concomitant]
     Route: 048
  7. MEPRONIZINE [Suspect]
     Route: 048
     Dates: start: 20050101, end: 20081016
  8. RIVOTRIL [Concomitant]
     Route: 048

REACTIONS (5)
  - FALL [None]
  - HYPERKALAEMIA [None]
  - HYPONATRAEMIA [None]
  - IRRITABILITY [None]
  - TRAUMATIC HAEMATOMA [None]
